FAERS Safety Report 9288844 (Version 1)
Quarter: 2013Q2

REPORT INFORMATION
  Report Type: Spontaneous
  Country: US (occurrence: None)
  Receive Date: 20130509
  Receipt Date: 20130509
  Transmission Date: 20140414
  Serious: Yes (Other)
  Sender: FDA-Public Use
  Company Number: 2013SA045683

PATIENT
  Sex: Male

DRUGS (1)
  1. ICY HOT [Suspect]

REACTIONS (2)
  - Scar [None]
  - Pain [None]
